FAERS Safety Report 13935412 (Version 1)
Quarter: 2017Q3

REPORT INFORMATION
  Report Type: Spontaneous
  Country: US (occurrence: US)
  Receive Date: 20170901
  Receipt Date: 20170901
  Transmission Date: 20171127
  Serious: Yes (Other)
  Sender: FDA-Public Use
  Company Number: None

PATIENT
  Age: 76 Year
  Sex: Female
  Weight: 92.25 kg

DRUGS (13)
  1. GRAPE SEED OIL [Concomitant]
  2. AMITRIPTALYN [Concomitant]
  3. ALPHA-LINOLAC [Concomitant]
  4. COENZYME Q10 [Concomitant]
     Active Substance: UBIDECARENONE
  5. LOW DOSE ASPERIN [Concomitant]
  6. MULTI VIT-MIN [Concomitant]
  7. RESTASIS [Concomitant]
     Active Substance: CYCLOSPORINE
  8. VITAMIN D [Concomitant]
     Active Substance: CHOLECALCIFEROL
  9. GINKO BILOBA [Concomitant]
     Active Substance: GINKGO
  10. VITAMIN B COMPLEX [Concomitant]
     Active Substance: CYANOCOBALAMIN\DEXPANTHENOL\NIACINAMIDE\PYRIDOXINE HYDROCHLORIDE\RIBOFLAVIN 5^-PHOSPHATE SODIUM\THIAMINE HYDROCHLORIDE\VITAMIN B COMPLEX
  11. TURMERIC [Concomitant]
     Active Substance: HERBALS\TURMERIC
  12. AMOXICILLIN AND CLAVULANATE POTASSIUM [Suspect]
     Active Substance: AMOXICILLIN\CLAVULANATE POTASSIUM
     Indication: ASTHMA
     Dosage: ?          QUANTITY:20 TABLET(S);?
     Route: 048
     Dates: start: 20170828, end: 20170901
  13. DIVAN [Concomitant]

REACTIONS (7)
  - Abdominal pain [None]
  - Pruritus [None]
  - Nausea [None]
  - Swelling [None]
  - Genital rash [None]
  - Headache [None]
  - Dizziness [None]

NARRATIVE: CASE EVENT DATE: 20170901
